FAERS Safety Report 8062607-2 (Version None)
Quarter: 2012Q1

REPORT INFORMATION
  Report Type: 
  Country: None (occurrence: None)
  Receive Date: 20120118
  Receipt Date: 20120106
  Transmission Date: 20120608
  Serious: Yes (Hospitalization, Other)
  Sender: FDA-Public Use
  Company Number: ADR-2011-11843

PATIENT
  Sex: Female

DRUGS (2)
  1. LIORESAL [Suspect]
     Indication: MUSCLE SPASTICITY
     Dosage: SEE B5
  2. LIORESAL [Suspect]
     Indication: CEREBRAL PALSY
     Dosage: SEE B5

REACTIONS (14)
  - DEVICE FAILURE [None]
  - HEADACHE [None]
  - DISINHIBITION [None]
  - SLEEP DISORDER [None]
  - CHANGE OF BOWEL HABIT [None]
  - POLLAKIURIA [None]
  - INTENTIONAL SELF-INJURY [None]
  - CONSTIPATION [None]
  - HALLUCINATIONS, MIXED [None]
  - AGITATION [None]
  - DRUG WITHDRAWAL SYNDROME [None]
  - AGGRESSION [None]
  - RESTLESSNESS [None]
  - CONFUSIONAL STATE [None]
